FAERS Safety Report 9553466 (Version 1)
Quarter: 2013Q3

REPORT INFORMATION
  Report Type: Spontaneous
  Country: CN (occurrence: CN)
  Receive Date: 20130925
  Receipt Date: 20130925
  Transmission Date: 20140515
  Serious: Yes (Other)
  Sender: FDA-Public Use
  Company Number: CN-PFIZER INC-2013264622

PATIENT
  Age: 62 Year
  Sex: Male

DRUGS (3)
  1. METHYLPREDNISOLONE [Suspect]
     Indication: MYASTHENIA GRAVIS
     Dosage: 1000 MG, UNK
     Route: 041
     Dates: start: 1996
  2. DEXAMETHASONE [Concomitant]
     Indication: MYASTHENIA GRAVIS
     Dosage: 10 MG/DAY
     Route: 042
  3. CYCLOPHOSPHAMIDE [Concomitant]
     Indication: MYASTHENIA GRAVIS

REACTIONS (1)
  - Atrial fibrillation [Recovered/Resolved]
